FAERS Safety Report 15783651 (Version 7)
Quarter: 2019Q2

REPORT INFORMATION
  Report Type: Report from Study
  Country: JP (occurrence: JP)
  Receive Date: 20190102
  Receipt Date: 20190430
  Transmission Date: 20190711
  Serious: Yes (Hospitalization)
  Sender: FDA-Public Use
  Company Number: JP-GE HEALTHCARE LIFE SCIENCES-2018CSU004400

PATIENT

DRUGS (8)
  1. ADUCANUMAB [Suspect]
     Active Substance: ADUCANUMAB
     Dosage: UNK
     Dates: start: 20190117, end: 20190117
  2. FESOTERODINE FUMARATE. [Concomitant]
     Active Substance: FESOTERODINE FUMARATE
     Indication: HYPERTONIC BLADDER
     Dosage: 4 MG, QD
     Route: 048
     Dates: start: 20171206
  3. LOCHOL                             /01224502/ [Concomitant]
     Active Substance: FLUVASTATIN SODIUM
     Indication: HYPERLIPIDAEMIA
     Dosage: 30 MG, QD
     Route: 048
     Dates: start: 20180704
  4. VIZAMYL [Suspect]
     Active Substance: FLUTEMETAMOL F-18
     Indication: DEMENTIA ALZHEIMER^S TYPE
     Dosage: UNK UNK, SINGLE
     Route: 065
     Dates: start: 20180308, end: 20180308
  5. ADUCANUMAB [Suspect]
     Active Substance: ADUCANUMAB
     Indication: DEMENTIA ALZHEIMER^S TYPE
     Dosage: UNK
     Route: 065
     Dates: start: 20180315, end: 20181023
  6. ADUCANUMAB [Suspect]
     Active Substance: ADUCANUMAB
     Dosage: UNK
     Dates: start: 20190214, end: 20190214
  7. DONEPEZIL HYDROCHLORIDE. [Concomitant]
     Active Substance: DONEPEZIL HYDROCHLORIDE
     Indication: DEMENTIA ALZHEIMER^S TYPE
     Dosage: 5 MG, QD
     Route: 048
     Dates: start: 20170607
  8. ADUCANUMAB [Suspect]
     Active Substance: ADUCANUMAB
     Dosage: UNK

REACTIONS (1)
  - Lung neoplasm malignant [Not Recovered/Not Resolved]

NARRATIVE: CASE EVENT DATE: 20181025
